FAERS Safety Report 8059167-9 (Version None)
Quarter: 2012Q1

REPORT INFORMATION
  Report Type: 
  Country: None (occurrence: None)
  Receive Date: 20120120
  Receipt Date: 20110831
  Transmission Date: 20120608
  Serious: No
  Sender: FDA-Public Use
  Company Number: US-BRISTOL-MYERS SQUIBB COMPANY-15928955

PATIENT
  Age: 57 Year
  Sex: Female

DRUGS (5)
  1. CISPLATIN [Suspect]
     Indication: FALLOPIAN TUBE CANCER
     Dosage: RECEIVED 1 DOSE.
     Route: 033
     Dates: start: 20110621, end: 20110622
  2. TAXOL [Concomitant]
     Route: 042
  3. DEXAMETHASONE TAB [Concomitant]
     Route: 042
  4. ONDANSETRON [Concomitant]
     Route: 042
  5. LORAZEPAM [Concomitant]
     Route: 042

REACTIONS (1)
  - MEDICATION ERROR [None]
